FAERS Safety Report 8772542 (Version 1)
Quarter: 2012Q4

REPORT INFORMATION
  Report Type: 
  Country: RU (occurrence: RU)
  Receive Date: 20120905
  Receipt Date: 20120905
  Transmission Date: 20130627
  Serious: Yes (Life-Threatening)
  Sender: FDA-Public Use
  Company Number: RU-BAYER-2012-091467

PATIENT
  Age: 70 Year
  Sex: Female

DRUGS (1)
  1. AVELOX [Suspect]

REACTIONS (2)
  - Anaphylactic shock [Recovered/Resolved]
  - Blood pressure decreased [Recovered/Resolved]
